FAERS Safety Report 17829163 (Version 1)
Quarter: 2020Q2

REPORT INFORMATION
  Report Type: Spontaneous
  Country: US (occurrence: US)
  Receive Date: 20200527
  Receipt Date: 20200527
  Transmission Date: 20200714
  Serious: Yes (Congenital Anomaly)
  Sender: FDA-Public Use
  Company Number: None

PATIENT
  Age: 73 Year
  Sex: Female
  Weight: 94.95 kg

DRUGS (8)
  1. CALCIUM CARBONATE. [Concomitant]
     Active Substance: CALCIUM CARBONATE
  2. OLMESARTAN [Concomitant]
     Active Substance: OLMESARTAN
  3. IBUPROFEN. [Concomitant]
     Active Substance: IBUPROFEN
  4. VITAMIN D [Concomitant]
     Active Substance: VITAMIN D NOS
  5. MULTIVITAMIN [Concomitant]
     Active Substance: VITAMINS
  6. VERZENIO [Suspect]
     Active Substance: ABEMACICLIB
     Indication: BREAST CANCER FEMALE
     Route: 048
     Dates: start: 20200420, end: 20200527
  7. ASPIRIN. [Concomitant]
     Active Substance: ASPIRIN
  8. LETROZOLE. [Concomitant]
     Active Substance: LETROZOLE

REACTIONS (1)
  - Diarrhoea [None]

NARRATIVE: CASE EVENT DATE: 20200527
